FAERS Safety Report 23176152 (Version 4)
Quarter: 2024Q2

REPORT INFORMATION
  Report Type: Report from Study
  Country: US (occurrence: US)
  Receive Date: 20231113
  Receipt Date: 20240517
  Transmission Date: 20240716
  Serious: No
  Sender: FDA-Public Use
  Company Number: US-AstraZeneca-CH-00503729A

PATIENT
  Sex: Male

DRUGS (17)
  1. STRENSIQ [Suspect]
     Active Substance: ASFOTASE ALFA
     Indication: Hypophosphatasia
     Dosage: 169.2 MILLIGRAM, TIW
     Route: 058
  2. STRENSIQ [Suspect]
     Active Substance: ASFOTASE ALFA
     Dosage: 162 MILLIGRAM, TIW
     Route: 065
  3. ATORVASTATIN [Concomitant]
     Active Substance: ATORVASTATIN
     Indication: Product used for unknown indication
     Dosage: 40 MILLIGRAM, QD
     Route: 048
  4. ATORVASTATIN [Concomitant]
     Active Substance: ATORVASTATIN
     Dosage: 10 MILLIGRAM, QD
  5. CLOPIDOGREL [Concomitant]
     Active Substance: CLOPIDOGREL BISULFATE
     Indication: Product used for unknown indication
     Dosage: 75 MILLIGRAM
     Route: 048
  6. LOSARTAN [Concomitant]
     Active Substance: LOSARTAN
     Indication: Product used for unknown indication
     Dosage: 50 MILLIGRAM, QD
     Route: 048
  7. METOPROLOL [Concomitant]
     Active Substance: METOPROLOL
     Indication: Product used for unknown indication
     Dosage: 25 MILLIGRAM
     Route: 048
  8. MONTELUKAST [Concomitant]
     Active Substance: MONTELUKAST SODIUM
     Indication: Product used for unknown indication
     Dosage: 10 MILLIGRAM
     Route: 048
  9. LOVAZA [Concomitant]
     Active Substance: OMEGA-3-ACID ETHYL ESTERS
     Indication: Product used for unknown indication
     Dosage: 2000 MILLIGRAM, BID
     Route: 048
  10. LOVAZA [Concomitant]
     Active Substance: OMEGA-3-ACID ETHYL ESTERS
     Dosage: 1 GRAM, BID
  11. REFRESH OPTIVE MEGA-3 [Concomitant]
     Active Substance: CARBOXYMETHYLCELLULOSE SODIUM\GLYCERIN\POLYSORBATE 80
     Indication: Product used for unknown indication
     Dosage: UNK, BID
     Route: 065
  12. ASPIRIN [Concomitant]
     Active Substance: ASPIRIN
     Indication: Product used for unknown indication
     Dosage: 81 MILLIGRAM, QD
     Route: 065
  13. METOPROLOL TARTRATE [Concomitant]
     Active Substance: METOPROLOL TARTRATE
     Indication: Product used for unknown indication
     Dosage: 25 MILLIGRAM, QD
     Route: 065
  14. NASACORT AQ [Concomitant]
     Active Substance: TRIAMCINOLONE ACETONIDE
     Indication: Product used for unknown indication
     Dosage: 55 MICROGRAM, TWICE AT NIGHT
     Route: 045
  15. PANTOPRAZOLE [Concomitant]
     Active Substance: PANTOPRAZOLE
     Indication: Product used for unknown indication
     Dosage: 20 MILLIGRAM, QD
     Route: 065
  16. SINGULAIR [Concomitant]
     Active Substance: MONTELUKAST SODIUM
     Indication: Product used for unknown indication
     Dosage: 10 MILLIGRAM, QD
     Route: 065
  17. SUCRALFATE [Concomitant]
     Active Substance: SUCRALFATE
     Indication: Product used for unknown indication
     Dosage: 1 GRAM, QID
     Route: 065

REACTIONS (8)
  - Weight decreased [Recovering/Resolving]
  - Dysstasia [Unknown]
  - Pain in extremity [Unknown]
  - Vision blurred [Unknown]
  - Fall [Unknown]
  - Light chain analysis abnormal [Recovering/Resolving]
  - Antinuclear antibody increased [Unknown]
  - Mobility decreased [Unknown]
